FAERS Safety Report 9106642 (Version 1)
Quarter: 2013Q1

REPORT INFORMATION
  Report Type: Spontaneous
  Country: JP (occurrence: JP)
  Receive Date: 20130221
  Receipt Date: 20130221
  Transmission Date: 20140127
  Serious: Yes (Life-Threatening, Other)
  Sender: FDA-Public Use
  Company Number: JP-BRACCO-002062

PATIENT
  Age: 61 Year
  Sex: Male
  Weight: 70 kg

DRUGS (6)
  1. AMLODIN [Concomitant]
     Indication: HYPERTENSION
     Route: 048
     Dates: start: 2005
  2. BUFFERIN 500 [Concomitant]
     Indication: CEREBRAL INFARCTION
     Route: 048
     Dates: start: 2005
  3. NU-LOTAN [Concomitant]
     Indication: HYPERTENSION
     Route: 048
     Dates: start: 2005
  4. PLAVIX [Concomitant]
     Indication: PROPHYLAXIS
     Route: 048
     Dates: start: 20090511
  5. IOPAMIRON [Suspect]
     Indication: ARTERIOGRAM CAROTID
     Dosage: DURING EMBOLIZATION
     Route: 013
     Dates: start: 20090513, end: 20090513
  6. IOPAMIRON [Suspect]
     Indication: ARTERIOGRAM CAROTID
     Dosage: AFTER PROCEDURE COMPLETED
     Route: 013
     Dates: start: 20090513, end: 20090513

REACTIONS (5)
  - Incorrect dose administered [Recovered/Resolved]
  - Altered state of consciousness [Recovered/Resolved]
  - Convulsion [Recovered/Resolved]
  - Hemiparesis [Recovered/Resolved]
  - Aphasia [Recovered/Resolved]
